FAERS Safety Report 11911777 (Version 4)
Quarter: 2017Q3

REPORT INFORMATION
  Report Type: Report from Study
  Country: None (occurrence: GB)
  Receive Date: 20160112
  Receipt Date: 20170906
  Transmission Date: 20171127
  Serious: No
  Sender: FDA-Public Use
  Company Number: GB-ABBVIE-16K-167-1535198-00

PATIENT
  Age: 37 Year
  Sex: Female
  Weight: 103 kg

DRUGS (2)
  1. METHOTREXATE. [Concomitant]
     Active Substance: METHOTREXATE
     Indication: RHEUMATOID ARTHRITIS
  2. HUMIRA [Suspect]
     Active Substance: ADALIMUMAB
     Indication: RHEUMATOID ARTHRITIS
     Route: 058
     Dates: start: 20050405

REACTIONS (1)
  - Melanocytic naevus [Unknown]

NARRATIVE: CASE EVENT DATE: 20151015
